FAERS Safety Report 8308436-3 (Version None)
Quarter: 2012Q2

REPORT INFORMATION
  Report Type: 
  Country: None (occurrence: None)
  Receive Date: 20120424
  Receipt Date: 20120419
  Transmission Date: 20120825
  Serious: Yes (Other)
  Sender: FDA-Public Use
  Company Number: SE-ROCHE-1058367

PATIENT
  Sex: Female

DRUGS (2)
  1. MABTHERA [Suspect]
     Indication: PRODUCT USED FOR UNKNOWN INDICATION
     Dosage: 1 GMN
     Route: 042
     Dates: start: 20080207, end: 20110515
  2. PREDNISOLONE [Concomitant]

REACTIONS (3)
  - COLITIS [None]
  - INFECTION SUSCEPTIBILITY INCREASED [None]
  - CAMPYLOBACTER INFECTION [None]
